FAERS Safety Report 12067722 (Version 1)
Quarter: 2016Q1

REPORT INFORMATION
  Report Type: Spontaneous
  Country: FR (occurrence: FR)
  Receive Date: 20160211
  Receipt Date: 20160211
  Transmission Date: 20160526
  Serious: Yes (Hospitalization)
  Sender: FDA-Public Use
  Company Number: FR-SA-2016SA023572

PATIENT
  Age: 66 Year
  Sex: Female

DRUGS (1)
  1. THYROGEN [Suspect]
     Active Substance: THYROTROPIN ALFA
     Route: 030
     Dates: start: 20160102, end: 20160103

REACTIONS (3)
  - Headache [Recovered/Resolved with Sequelae]
  - Disease progression [Recovered/Resolved with Sequelae]
  - Gait disturbance [Recovered/Resolved with Sequelae]

NARRATIVE: CASE EVENT DATE: 20160103
